FAERS Safety Report 23388957 (Version 6)
Quarter: 2024Q2

REPORT INFORMATION
  Report Type: Report from Study
  Country: CN (occurrence: CN)
  Receive Date: 20240110
  Receipt Date: 20240502
  Transmission Date: 20240716
  Serious: Yes (Hospitalization)
  Sender: FDA-Public Use
  Company Number: CN-002147023-NVSC2024CN001866

PATIENT
  Age: 65 Year
  Sex: Female
  Weight: 59 kg

DRUGS (8)
  1. FEMARA [Suspect]
     Active Substance: LETROZOLE
     Indication: Invasive breast carcinoma
     Dosage: 2.5 MG, QD
     Route: 048
     Dates: start: 20221114, end: 20231210
  2. MOSAPRIDE CITRATE [Concomitant]
     Active Substance: MOSAPRIDE CITRATE
     Indication: Decreased appetite
     Dosage: 5 MG, TID
     Route: 065
     Dates: start: 20231016, end: 20231115
  3. MOSAPRIDE CITRATE [Concomitant]
     Active Substance: MOSAPRIDE CITRATE
     Indication: Gastritis
     Dosage: 5 MG, TID
     Route: 065
     Dates: start: 20231102
  4. TRAMADOL HYDROCHLORIDE [Concomitant]
     Active Substance: TRAMADOL HYDROCHLORIDE
     Indication: Breast cancer
     Dosage: 0.1 G, BID
     Route: 065
     Dates: start: 20230821, end: 20230904
  5. TRAMADOL HYDROCHLORIDE [Concomitant]
     Active Substance: TRAMADOL HYDROCHLORIDE
     Dosage: 0.1 G, BID
     Route: 065
     Dates: start: 20231016, end: 20231101
  6. TRAMADOL HYDROCHLORIDE [Concomitant]
     Active Substance: TRAMADOL HYDROCHLORIDE
     Dosage: 0.2 G, BID
     Route: 065
     Dates: start: 20231102, end: 20231115
  7. LYSOZYME [Concomitant]
     Active Substance: LYSOZYME
     Indication: Laryngeal oedema
     Dosage: 20 MG, QID
     Route: 065
     Dates: start: 20231129, end: 20231201
  8. PEPSIN SACCHARATED [Concomitant]
     Indication: Laryngeal oedema
     Dosage: 10 G, TID
     Route: 065
     Dates: start: 20231129, end: 20231201

REACTIONS (13)
  - Palpitations [Recovered/Resolved]
  - Chest discomfort [Unknown]
  - Dizziness [Unknown]
  - Asthenia [Unknown]
  - Nausea [Unknown]
  - Vomiting [Unknown]
  - Blood glucose increased [Unknown]
  - Pulmonary valve incompetence [Unknown]
  - Disease progression [Unknown]
  - Sinus tachycardia [Recovered/Resolved]
  - Electrocardiogram abnormal [Unknown]
  - Blood pressure diastolic increased [Unknown]
  - Blood pressure systolic increased [Unknown]

NARRATIVE: CASE EVENT DATE: 20231113
